FAERS Safety Report 15447921 (Version 1)
Quarter: 2018Q3

REPORT INFORMATION
  Report Type: Report from Study
  Country: TH (occurrence: TH)
  Receive Date: 20180928
  Receipt Date: 20180928
  Transmission Date: 20181010
  Serious: Yes (Hospitalization)
  Sender: FDA-Public Use
  Company Number: PHHO2018TH010344

PATIENT
  Age: 34 Year
  Sex: Male
  Weight: 58 kg

DRUGS (2)
  1. KAF156 [Suspect]
     Active Substance: GANAPLACIDE
     Indication: PLASMODIUM FALCIPARUM INFECTION
     Dosage: 800 MG, QD
     Route: 048
     Dates: start: 20180824
  2. LUMEFANTRINE [Suspect]
     Active Substance: LUMEFANTRINE
     Indication: PLASMODIUM FALCIPARUM INFECTION
     Dosage: 960 MG, QD
     Route: 048
     Dates: start: 20180824

REACTIONS (1)
  - Plasmodium falciparum infection [Recovered/Resolved]

NARRATIVE: CASE EVENT DATE: 20180915
